FAERS Safety Report 9181355 (Version 1)
Quarter: 2013Q1

REPORT INFORMATION
  Report Type: Spontaneous
  Country: US (occurrence: US)
  Receive Date: 20130322
  Receipt Date: 20130322
  Transmission Date: 20140127
  Serious: No
  Sender: FDA-Public Use
  Company Number: US-009507513-1303USA011138

PATIENT
  Age: 4 Year
  Sex: Female
  Weight: 18.59 kg

DRUGS (2)
  1. CLARITIN ORAL SOLUTION [Suspect]
     Indication: RHINORRHOEA
     Dosage: 5 ML, HS
     Route: 048
     Dates: start: 20130315
  2. CLARITIN ORAL SOLUTION [Suspect]
     Dosage: 5 ML, QAM
     Route: 048

REACTIONS (1)
  - Overdose [Unknown]
